FAERS Safety Report 10873436 (Version 1)
Quarter: 2015Q1

REPORT INFORMATION
  Report Type: Spontaneous
  Country: US (occurrence: None)
  Receive Date: 20150223
  Receipt Date: 20150223
  Transmission Date: 20150721
  Serious: No
  Sender: FDA-Public Use
  Company Number: None

PATIENT
  Age: 41 Year
  Sex: Female
  Weight: 61.6 kg

DRUGS (1)
  1. HUMIRA [Suspect]
     Active Substance: ADALIMUMAB
     Indication: CROHN^S DISEASE
     Dosage: 40MG PEN KIT EVERY 10 DAYS SUBCUTANEOUSLY
     Route: 058
     Dates: start: 201402

REACTIONS (1)
  - Asthma [None]

NARRATIVE: CASE EVENT DATE: 20140701
